FAERS Safety Report 5104901-0 (Version None)
Quarter: 2006Q3

REPORT INFORMATION
  Report Type: 
  Country: None (occurrence: None)
  Receive Date: 20060914
  Receipt Date: 20060614
  Transmission Date: 20061208
  Serious: Yes (Other)
  Sender: FDA-Public Use
  Company Number: PHFR2006GB01985

PATIENT
  Sex: Female

DRUGS (1)
  1. GLEEVEC [Suspect]
     Route: 065

REACTIONS (5)
  - HEADACHE [None]
  - LIVER OPERATION [None]
  - METASTASES TO LIVER [None]
  - MUSCULOSKELETAL PAIN [None]
  - TOOTHACHE [None]
